FAERS Safety Report 9746313 (Version 1)
Quarter: 2013Q4

REPORT INFORMATION
  Report Type: Spontaneous
  Country: GB (occurrence: None)
  Receive Date: 20131205
  Receipt Date: 20131205
  Transmission Date: 20140711
  Serious: Yes (Other)
  Sender: FDA-Public Use
  Company Number: AUR-APL-2013-09918

PATIENT
  Age: 54 Year
  Sex: Male

DRUGS (8)
  1. RIBAVIRIN (RIBAVIRIN) [Suspect]
     Indication: HEPATITIS C
  2. RIBAVIRIN (RIBAVIRIN) [Suspect]
     Indication: HIV INFECTION
  3. INCIVO (TELAPREVIR) [Suspect]
     Indication: HEPATITIS C
     Dosage: 750 MG, 8 HR
  4. INCIVO (TELAPREVIR) [Suspect]
     Indication: HIV INFECTION
     Dosage: 750 MG, 8 HR
  5. INTERFERON (INTERFERON) [Suspect]
     Indication: HEPATITIS C
  6. INTERFERON (INTERFERON) [Suspect]
     Indication: HIV INFECTION
  7. RALTEGRAVIR (RALTEGRAVIR) [Suspect]
     Indication: ANTIRETROVIRAL THERAPY
  8. TRUVADA [Suspect]
     Indication: ANTIRETROVIRAL THERAPY

REACTIONS (4)
  - Depression [None]
  - Rash [None]
  - Fatigue [None]
  - Off label use [None]
